FAERS Safety Report 9249672 (Version 1)
Quarter: 2013Q2

REPORT INFORMATION
  Report Type: Spontaneous
  Country: MX (occurrence: MX)
  Receive Date: 20130423
  Receipt Date: 20130423
  Transmission Date: 20140414
  Serious: Yes (Death)
  Sender: FDA-Public Use
  Company Number: MX-UCBSA-084052

PATIENT
  Age: 59 Year
  Sex: Male
  Weight: 72 kg

DRUGS (3)
  1. VIMPAT [Suspect]
     Indication: EPILEPSY
     Dosage: NO OF DOSES RECEIVED:6
     Route: 048
     Dates: start: 20130314, end: 20130317
  2. METPHORMIN [Concomitant]
     Indication: TYPE 2 DIABETES MELLITUS
     Route: 048
     Dates: start: 2002, end: 20130322
  3. HUMULIN [Concomitant]
     Indication: TYPE 2 DIABETES MELLITUS
     Dosage: 5 UI
     Route: 058
     Dates: start: 2012, end: 20130322

REACTIONS (2)
  - Myocardial infarction [Fatal]
  - Hyperglycaemia [Recovered/Resolved]
